FAERS Safety Report 23332483 (Version 1)
Quarter: 2023Q4

REPORT INFORMATION
  Report Type: Spontaneous
  Country: US (occurrence: None)
  Receive Date: 20231222
  Receipt Date: 20231222
  Transmission Date: 20240109
  Serious: Yes (Hospitalization)
  Sender: FDA-Public Use
  Company Number: None

PATIENT
  Age: 80 Year
  Sex: Male

DRUGS (1)
  1. CABOMETYX [Suspect]
     Active Substance: CABOZANTINIB S-MALATE
     Indication: Renal cancer
     Dosage: FREQUENCY : DAILY;?
     Route: 048
     Dates: start: 20230729, end: 20231121

REACTIONS (6)
  - Dyspnoea [None]
  - Arthralgia [None]
  - Pain in extremity [None]
  - Chest pain [None]
  - Malignant neoplasm progression [None]
  - Therapy cessation [None]

NARRATIVE: CASE EVENT DATE: 20231221
